FAERS Safety Report 8439178-1 (Version None)
Quarter: 2012Q2

REPORT INFORMATION
  Report Type: 
  Country: None (occurrence: None)
  Receive Date: 20120615
  Receipt Date: 20120607
  Transmission Date: 20120825
  Serious: Yes (Other)
  Sender: FDA-Public Use
  Company Number: PHHY2012JP035253

PATIENT
  Age: 28 Year
  Sex: Female

DRUGS (1)
  1. NEORAL [Suspect]
     Indication: PSORIASIS
     Dosage: UNK UKN, UNK
     Route: 048
     Dates: end: 20120401

REACTIONS (2)
  - MATERNAL EXPOSURE DURING PREGNANCY [None]
  - PRECANCEROUS CELLS PRESENT [None]
